FAERS Safety Report 9253913 (Version 1)
Quarter: 2013Q2

REPORT INFORMATION
  Report Type: Spontaneous
  Country: US (occurrence: None)
  Receive Date: 20130422
  Receipt Date: 20130422
  Transmission Date: 20140414
  Serious: No
  Sender: FDA-Public Use
  Company Number: None

PATIENT
  Age: 42 Year
  Sex: Female
  Weight: 64.4 kg

DRUGS (2)
  1. BACTRIM DS [Suspect]
     Dosage: 1 TAB -800/160 MG-  BID  PO
     Route: 048
     Dates: start: 20130416, end: 20130417
  2. KEFLEX [Suspect]
     Dosage: 500 MG  Q6 HOURS  PO
     Route: 048
     Dates: start: 20130416, end: 20130417

REACTIONS (2)
  - Swollen tongue [None]
  - Pruritus [None]
